FAERS Safety Report 10218978 (Version 1)
Quarter: 2014Q2

REPORT INFORMATION
  Report Type: Spontaneous
  Country: FR (occurrence: None)
  Receive Date: 20140603
  Receipt Date: 20140603
  Transmission Date: 20141212
  Serious: Yes (Hospitalization)
  Sender: FDA-Public Use
  Company Number: 7293930

PATIENT
  Age: 41 Year
  Sex: Female

DRUGS (2)
  1. THYROZOL [Suspect]
     Indication: PRODUCT USED FOR UNKNOWN INDICATION
     Route: 048
     Dates: end: 20140426
  2. LEVOTHYROX (LEVOTHYROXINE SODIUM) (50 MICROGRAM, TABLET) (LEVOTHYROXINE SODIUM) [Suspect]
     Indication: PRODUCT USED FOR UNKNOWN INDICATION
     Dates: end: 20140426

REACTIONS (1)
  - Agranulocytosis [None]
